FAERS Safety Report 6090249-7 (Version None)
Quarter: 2009Q1

REPORT INFORMATION
  Report Type: 
  Country: None (occurrence: None)
  Receive Date: 20090220
  Receipt Date: 20090212
  Transmission Date: 20090719
  Serious: Yes (Hospitalization)
  Sender: FDA-Public Use
  Company Number: 2009SP002110

PATIENT
  Age: 45 Year
  Sex: Female

DRUGS (1)
  1. NOXAFIL [Suspect]
     Indication: PROPHYLAXIS

REACTIONS (3)
  - BRONCHOPULMONARY ASPERGILLOSIS [None]
  - DRUG INEFFECTIVE [None]
  - POST PROCEDURAL COMPLICATION [None]
